FAERS Safety Report 9531979 (Version 2)
Quarter: 2013Q3

REPORT INFORMATION
  Report Type: Report from Study
  Country: JP (occurrence: JP)
  Receive Date: 20130918
  Receipt Date: 20130918
  Transmission Date: 20140515
  Serious: Yes (Hospitalization)
  Sender: FDA-Public Use
  Company Number: JP-TAKEDA-TCI2012A01526

PATIENT
  Age: 68 Year
  Sex: Female
  Weight: 65 kg

DRUGS (8)
  1. NESINA TABLETS 25MG [Suspect]
     Indication: TYPE 2 DIABETES MELLITUS
     Route: 048
     Dates: start: 20100912
  2. BLOPRESS TABLETS 8 [Concomitant]
     Route: 048
     Dates: start: 20090214
  3. BASEN OD [Concomitant]
     Indication: TYPE 2 DIABETES MELLITUS
     Route: 048
  4. BASEN OD [Concomitant]
     Route: 048
  5. AMARYL [Concomitant]
     Indication: TYPE 2 DIABETES MELLITUS
     Route: 048
     Dates: start: 20090620, end: 20110930
  6. AMARYL [Concomitant]
     Route: 048
  7. AMARYL [Concomitant]
     Route: 048
     Dates: start: 20111001
  8. BLOPRESS  8 [Concomitant]
     Route: 048
     Dates: start: 20090214

REACTIONS (2)
  - Calculus ureteric [Recovered/Resolved]
  - Hydronephrosis [Recovered/Resolved]
